FAERS Safety Report 10159691 (Version 1)
Quarter: 2014Q2

REPORT INFORMATION
  Report Type: Spontaneous
  Country: CN (occurrence: CN)
  Receive Date: 20140508
  Receipt Date: 20140508
  Transmission Date: 20141212
  Serious: Yes (Life-Threatening)
  Sender: FDA-Public Use
  Company Number: CN-BAYER-2014-066636

PATIENT
  Age: 33 Year
  Sex: Female
  Weight: 50 kg

DRUGS (2)
  1. IOPROMIDE [Suspect]
     Indication: IMAGING PROCEDURE
     Dosage: 10 ML, QD
     Dates: start: 20130320, end: 20130320
  2. ATROPINE SULPHATE [Concomitant]
     Indication: IMAGING PROCEDURE
     Dosage: 0.5 MG, QD
     Route: 030
     Dates: start: 20130320, end: 20130320

REACTIONS (1)
  - Dyspnoea [Recovered/Resolved]
